FAERS Safety Report 8846291 (Version 2)
Quarter: 2012Q4

REPORT INFORMATION
  Report Type: 
  Country: AU (occurrence: AU)
  Receive Date: 20121018
  Receipt Date: 20121214
  Transmission Date: 20130627
  Serious: Yes (Life-Threatening)
  Sender: FDA-Public Use
  Company Number: AU-009507513-1210AUS006741

PATIENT
  Age: 76 Year
  Sex: Female

DRUGS (2)
  1. SAPHRIS [Suspect]
     Indication: BIPOLAR I DISORDER
     Dosage: 10 mg, bid
     Route: 060
     Dates: start: 2012
  2. SAPHRIS [Suspect]
     Indication: AFFECTIVE DISORDER

REACTIONS (1)
  - Suicide attempt [Recovered/Resolved]
